FAERS Safety Report 9115797 (Version 1)
Quarter: 2013Q1

REPORT INFORMATION
  Report Type: Spontaneous
  Country: US (occurrence: US)
  Receive Date: 20130224
  Receipt Date: 20130224
  Transmission Date: 20140127
  Serious: Yes (Other)
  Sender: FDA-Public Use
  Company Number: PHEH2013US004317

PATIENT
  Sex: Female

DRUGS (2)
  1. FEMARA [Suspect]
     Indication: INFERTILITY
  2. CLOMID [Suspect]
     Indication: INFERTILITY
     Dosage: UNK

REACTIONS (2)
  - Abortion spontaneous [Unknown]
  - Exposure during pregnancy [Unknown]
